FAERS Safety Report 5531512-5 (Version None)
Quarter: 2007Q4

REPORT INFORMATION
  Report Type: 
  Country: None (occurrence: None)
  Receive Date: 20071128
  Receipt Date: 20071128
  Transmission Date: 20080405
  Serious: Yes (Hospitalization)
  Sender: FDA-Public Use
  Company Number: None

PATIENT
  Age: 63 Year
  Sex: Female

DRUGS (2)
  1. WARFARIN SODIUM [Suspect]
     Indication: HEART VALVE REPLACEMENT
     Dosage: 5 MG DAILY PO
     Route: 048
  2. ASPIRIN [Suspect]
     Indication: CARDIAC DISORDER
     Dosage: 81MG DAILY PO
     Route: 048

REACTIONS (9)
  - ANAEMIA [None]
  - ARTERIOVENOUS MALFORMATION [None]
  - BRONCHITIS [None]
  - GASTRIC HAEMORRHAGE [None]
  - GASTRITIS [None]
  - INTERNATIONAL NORMALISED RATIO INCREASED [None]
  - MELAENA [None]
  - PLATELET COUNT INCREASED [None]
  - UPPER GASTROINTESTINAL HAEMORRHAGE [None]
